FAERS Safety Report 25549077 (Version 2)
Quarter: 2025Q3

REPORT INFORMATION
  Report Type: Spontaneous
  Country: UY (occurrence: UY)
  Receive Date: 20250714
  Receipt Date: 20250716
  Transmission Date: 20251021
  Serious: Yes (Other)
  Sender: BRISTOL-MYERS SQUIBB COMPANY
  Company Number: UY-BRISTOL-MYERS SQUIBB COMPANY-2025-065354

PATIENT

DRUGS (2)
  1. OPDIVO [Suspect]
     Active Substance: NIVOLUMAB
     Indication: Metastatic malignant melanoma
     Dosage: EVERY 3 WEEKS
     Route: 042
     Dates: start: 202502
  2. YERVOY [Suspect]
     Active Substance: IPILIMUMAB
     Indication: Metastatic malignant melanoma
     Dosage: PRESENTATION 50 MG X 1 INY X 1 FCO. EVERY 3 WEEKS
     Route: 042
     Dates: start: 202502

REACTIONS (1)
  - Malignant neoplasm progression [Unknown]
